FAERS Safety Report 6302517-1 (Version None)
Quarter: 2009Q3

REPORT INFORMATION
  Report Type: 
  Country: None (occurrence: None)
  Receive Date: 20090810
  Receipt Date: 20090804
  Transmission Date: 20100115
  Serious: Yes (Hospitalization)
  Sender: FDA-Public Use
  Company Number: FR-AVENTIS-200912883FR

PATIENT
  Age: 82 Year
  Sex: Female

DRUGS (4)
  1. LOVENOX [Suspect]
     Indication: DRUG USE FOR UNKNOWN INDICATION
     Route: 058
  2. BACTRIM [Suspect]
     Route: 048
     Dates: start: 20090626, end: 20090706
  3. FLECAINIDE ACETATE [Suspect]
     Indication: DRUG USE FOR UNKNOWN INDICATION
     Route: 048
     Dates: start: 20090627, end: 20090706
  4. STABLON [Suspect]
     Indication: DRUG USE FOR UNKNOWN INDICATION
     Route: 048
     Dates: start: 20090626, end: 20090706

REACTIONS (1)
  - STEVENS-JOHNSON SYNDROME [None]
